FAERS Safety Report 12708160 (Version 1)
Quarter: 2016Q3

REPORT INFORMATION
  Report Type: Report from Study
  Country: US (occurrence: US)
  Receive Date: 20160901
  Receipt Date: 20160901
  Transmission Date: 20161109
  Serious: Yes (Other)
  Sender: FDA-Public Use
  Company Number: US-MALLINCKRODT-T201603956

PATIENT
  Age: 66 Year
  Sex: Female

DRUGS (4)
  1. FUROSEMIDE. [Concomitant]
     Active Substance: FUROSEMIDE
  2. REPOSITORY CORTICOTROPIN INJECTION [Suspect]
     Active Substance: CORTICOTROPIN
     Indication: SARCOIDOSIS
     Dosage: 40U/.5ML 2X/WK (SUN AND WED.)
     Route: 058
     Dates: start: 20160106
  3. POTASSIUM [Concomitant]
     Active Substance: POTASSIUM
     Dosage: 6 TABLETS DAILY
  4. METOLAZONE. [Concomitant]
     Active Substance: METOLAZONE
     Dosage: 2X WEEKLY

REACTIONS (5)
  - Joint stiffness [Not Recovered/Not Resolved]
  - Fluid retention [Not Recovered/Not Resolved]
  - Hypokalaemia [Not Recovered/Not Resolved]
  - Joint swelling [Not Recovered/Not Resolved]
  - Peripheral swelling [Not Recovered/Not Resolved]

NARRATIVE: CASE EVENT DATE: 20160106
